FAERS Safety Report 15041263 (Version 1)
Quarter: 2018Q2

REPORT INFORMATION
  Report Type: Spontaneous
  Country: US (occurrence: US)
  Receive Date: 20180621
  Receipt Date: 20180621
  Transmission Date: 20180711
  Serious: Yes (Hospitalization)
  Sender: FDA-Public Use
  Company Number: US-ROCHE-2139879

PATIENT
  Sex: Female
  Weight: 49.8 kg

DRUGS (20)
  1. TYLENOL [Concomitant]
     Active Substance: ACETAMINOPHEN
     Dosage: 2 TABLETS BY MOUTH EVERY 6 HOURS
     Route: 065
     Dates: start: 20120618
  2. TYLENOL [Concomitant]
     Active Substance: ACETAMINOPHEN
     Dosage: TAKE 1 TABLET BY MOUTH EVERY 8 HOURS AS NEEDED
     Route: 065
     Dates: start: 20111212
  3. CICLOPIROX. [Concomitant]
     Active Substance: CICLOPIROX
     Dosage: APPLY TO THE AFFECTED AREA TWICE PER DAY
     Route: 065
     Dates: start: 20110902
  4. PRAVASTATIN SODIUM. [Concomitant]
     Active Substance: PRAVASTATIN SODIUM
     Dosage: 1 TABLET BY MOUTH AT BEDTIME
     Route: 065
     Dates: start: 20120329
  5. VOLTAREN [Concomitant]
     Active Substance: DICLOFENAC SODIUM
     Dosage: APPLY (2G) TO THE AFFECTED AREA 2 TIMES PER DAY
     Route: 065
     Dates: start: 20110930
  6. CALCIUM 600+D3 [Concomitant]
     Active Substance: CALCIUM CARBONATE\VITAMIN D
     Dosage: 600 MG CALCIUM (1,500 MG)-400 UNIT?TAKE 1 TABLET BY MOUTH 2 TIMES PER DAY
     Route: 065
     Dates: start: 20110804
  7. LOPERAMIDE [Concomitant]
     Active Substance: LOPERAMIDE
     Dosage: TAKE 1 CAPSULE BY MOUTH EVERY 6 HOURS AS NEEDED FOR DIARRHEA (DO NOT TAKE MORE THAN 8 CAPSULES IN 24
     Route: 065
     Dates: start: 20110907
  8. AMIODARONE [Concomitant]
     Active Substance: AMIODARONE
  9. MOTRIN [Concomitant]
     Active Substance: IBUPROFEN
     Route: 065
     Dates: start: 20120526
  10. BONIVA [Suspect]
     Active Substance: IBANDRONATE SODIUM
     Dosage: TAKE 1 TABLET BY MOUTH MONTHLY, WITH A GLASS (8OZ) OF WATER, DO NOT LIE DOWN OR INGEST ANY FOOD FOR
     Route: 065
     Dates: start: 20110804
  11. SIMETHICONE (DIMETHICONE) [Concomitant]
     Active Substance: DIMETHICONE
     Dosage: CHEW AND SWALLOW 1 TABLET 3 TIMES PER DAY
     Route: 065
     Dates: start: 20120327
  12. SIMETHICONE (DIMETHICONE) [Concomitant]
     Active Substance: DIMETHICONE
     Dosage: CHEW AND SWALLOW 1 TABLET 3 TIMES PER DAY
     Route: 065
     Dates: start: 20110722
  13. ASPIRIN. [Concomitant]
     Active Substance: ASPIRIN
  14. BONIVA [Suspect]
     Active Substance: IBANDRONATE SODIUM
     Indication: PRODUCT USED FOR UNKNOWN INDICATION
     Dosage: TAKE 1 TABLET BY MOUTH MONTHLY, WITH A GLASS (BOZ) OF WATER, DO NOT LIE DOWN OR INGEST ANY FOOD FOR
     Route: 065
     Dates: start: 20111228
  15. METAMUCIL [Concomitant]
     Active Substance: PLANTAGO SEED
     Dosage: DISSOLVE 1 TABLESPOON IN A GLASS (8OZ) OF WATER OR JUICE AND DRINK DAILY
     Route: 065
     Dates: start: 20120301
  16. CLINPRO 5000 [Concomitant]
     Active Substance: SODIUM FLUORIDE
     Dosage: BRUSH TWICE DAILY
     Route: 065
     Dates: start: 20110803
  17. METAMUCIL [Concomitant]
     Active Substance: PLANTAGO SEED
     Dosage: DISSOLVE 1 TABLESPOON IN A GLASS (8OZ) OF WATER OR JUICE AND DRINK DAILY
     Route: 065
     Dates: start: 20111020
  18. TRANXENE T-TAB [Concomitant]
     Active Substance: CLORAZEPATE DIPOTASSIUM
     Dosage: TAKE 1 TABLET BY MOUTH DAILY AS NEEDED FOR ANXIETY
     Route: 065
     Dates: start: 20111020
  19. CICLOPIROX. [Concomitant]
     Active Substance: CICLOPIROX
     Dosage: APPLY TO AFFECTED NAILS ONCE A DAY
     Route: 065
     Dates: start: 20120426
  20. DILTIAZEM. [Concomitant]
     Active Substance: DILTIAZEM

REACTIONS (1)
  - Femur fracture [Unknown]
